FAERS Safety Report 6078567-X (Version None)
Quarter: 2009Q1

REPORT INFORMATION
  Report Type: 
  Country: None (occurrence: None)
  Receive Date: 20090212
  Receipt Date: 20090203
  Transmission Date: 20090719
  Serious: Yes (Other)
  Sender: FDA-Public Use
  Company Number: 09P-028-0501634-00

PATIENT
  Age: 24 Week

DRUGS (1)
  1. SYNAGIS [Suspect]
     Indication: DRUG USE FOR UNKNOWN INDICATION
     Dosage: (21 MG)
     Dates: start: 20081031, end: 20081031

REACTIONS (2)
  - MALAISE [None]
  - WHITE BLOOD CELL COUNT INCREASED [None]
